FAERS Safety Report 19501745 (Version 1)
Quarter: 2021Q3

REPORT INFORMATION
  Report Type: Spontaneous
  Country: US (occurrence: US)
  Receive Date: 20210703
  Receipt Date: 20210703
  Transmission Date: 20211014
  Serious: Yes (Hospitalization)
  Sender: FDA-Public Use
  Company Number: None

PATIENT
  Age: 65 Year
  Sex: Male
  Weight: 82.5 kg

DRUGS (3)
  1. DARATUMUMAB/RHUPH20 [Suspect]
     Active Substance: DARATUMUMAB\HYALURONIDASE-FIHJ
     Dates: end: 20210614
  2. LENALIDOMIDE (CC?5013) [Suspect]
     Active Substance: LENALIDOMIDE
     Dates: end: 20210618
  3. DEXAMETHASONE. [Suspect]
     Active Substance: DEXAMETHASONE
     Dates: end: 20210614

REACTIONS (5)
  - Asthenia [None]
  - Nausea [None]
  - Dehydration [None]
  - Myalgia [None]
  - Pyrexia [None]

NARRATIVE: CASE EVENT DATE: 20210619
